FAERS Safety Report 4292107-7 (Version None)
Quarter: 2004Q1

REPORT INFORMATION
  Report Type: 
  Country: None (occurrence: None)
  Receive Date: 20040126
  Receipt Date: 20031024
  Transmission Date: 20041129
  Serious: No
  Sender: FDA-Public Use
  Company Number: USA030741775

PATIENT
  Age: 78 Year
  Sex: Female
  Weight: 41 kg

DRUGS (7)
  1. FORTEO [Suspect]
     Indication: OSTEOPOROSIS
     Dosage: 20UG/DAY
     Dates: start: 20030601
  2. FOSAMAX [Concomitant]
  3. VIOXX [Concomitant]
  4. TYLENOL [Concomitant]
  5. CALCIUM [Concomitant]
  6. VITAMIN C [Concomitant]
  7. VITAMIN B COMPLEX CAP [Concomitant]

REACTIONS (4)
  - DYSURIA [None]
  - FEELING ABNORMAL [None]
  - MUSCLE TIGHTNESS [None]
  - NAUSEA [None]
